FAERS Safety Report 8991991 (Version 2)
Quarter: 2013Q1

REPORT INFORMATION
  Report Type: Report from Study
  Country: FR (occurrence: FR)
  Receive Date: 20121231
  Receipt Date: 20130108
  Transmission Date: 20140127
  Serious: Yes (Hospitalization)
  Sender: FDA-Public Use
  Company Number: FR-ASTELLAS-2012US012734

PATIENT
  Age: 60 Year
  Sex: Male
  Weight: 85 kg

DRUGS (11)
  1. BLINDED ENZALUTAMIDE [Suspect]
     Indication: PROSTATE CANCER METASTATIC
     Dosage: UNK
     Route: 048
     Dates: start: 20120911, end: 20121205
  2. ACECLOFENAC [Concomitant]
     Indication: BACK PAIN
     Dosage: 100 MG, BID
     Route: 048
     Dates: start: 20120925
  3. THIOCOLCHICOSIDE [Concomitant]
     Indication: BACK PAIN
     Dosage: 8 MG, BID
     Route: 048
     Dates: start: 20121003
  4. COVERSYL                           /00790702/ [Concomitant]
     Indication: HYPERTENSION
     Dosage: 25 MG, UID/QD
     Route: 048
     Dates: start: 20121003
  5. COVERSYL                           /00790702/ [Concomitant]
     Dosage: 5 MG, UID/QD
     Route: 048
     Dates: start: 20120620, end: 20121002
  6. SKENAN [Concomitant]
     Indication: BONE PAIN
     Dosage: 100 MG, BID
     Route: 048
     Dates: start: 20121104, end: 20121114
  7. ZOMETA [Concomitant]
     Indication: METASTASES TO BONE
     Dosage: 4 MG, MONTHLY
     Route: 042
     Dates: start: 20121109
  8. DUROGESIC [Concomitant]
     Indication: BONE PAIN
     Dosage: 16.8 MG, UNKNOWN/D
     Route: 062
     Dates: start: 20121115
  9. DUROGESIC [Concomitant]
     Dosage: 25 UG, HOURLY
     Route: 062
     Dates: start: 20121108
  10. DECAPEPTYL                         /00486501/ [Concomitant]
     Indication: PROSTATE CANCER
     Dosage: 11.25 MG, EVERY 3 MONTHS
     Route: 030
     Dates: start: 20090604
  11. TAXOTERE [Concomitant]
     Indication: PROSTATE CANCER
     Dosage: 75 MG/M2, Q3W
     Route: 042
     Dates: start: 20121207

REACTIONS (2)
  - Febrile bone marrow aplasia [Recovered/Resolved]
  - Diarrhoea [Recovered/Resolved]
